FAERS Safety Report 7022594-2 (Version None)
Quarter: 2010Q3

REPORT INFORMATION
  Report Type: 
  Country: None (occurrence: None)
  Receive Date: 20100930
  Receipt Date: 20100922
  Transmission Date: 20110219
  Serious: Yes (Hospitalization)
  Sender: FDA-Public Use
  Company Number: BR-PFIZER INC-2010107524

PATIENT
  Age: 45 Year
  Sex: Male

DRUGS (3)
  1. CHAMPIX [Suspect]
     Indication: SMOKING CESSATION THERAPY
     Dosage: 0.5 MG, 1X/DAY
     Route: 048
     Dates: start: 20100825
  2. OMEPRAZOLE [Concomitant]
     Indication: GASTRITIS
     Dosage: UNK
  3. OMEPRAZOLE [Concomitant]
     Indication: HIATUS HERNIA

REACTIONS (5)
  - ABDOMINAL DISCOMFORT [None]
  - DIVERTICULITIS [None]
  - HEADACHE [None]
  - NAUSEA [None]
  - PAIN [None]
